FAERS Safety Report 9336738 (Version 1)
Quarter: 2013Q2

REPORT INFORMATION
  Report Type: Spontaneous
  Country: DE (occurrence: DE)
  Receive Date: 20130607
  Receipt Date: 20130607
  Transmission Date: 20140414
  Serious: Yes (Other)
  Sender: FDA-Public Use
  Company Number: GXKR2013DE002021

PATIENT
  Sex: 0

DRUGS (3)
  1. CIPROFLOXACIN [Suspect]
     Indication: COLITIS
     Dosage: 250 MG, BID
     Route: 065
     Dates: start: 20130305, end: 20130316
  2. METRONIDAZOLE [Concomitant]
     Indication: COLITIS
     Dosage: 500 MG, BID
     Route: 065
     Dates: start: 20130305, end: 20130316
  3. METRONIDAZOLE [Concomitant]
     Indication: COLITIS

REACTIONS (3)
  - Crying [Recovered/Resolved]
  - Depression [Recovered/Resolved]
  - Suicidal ideation [Recovered/Resolved]
